FAERS Safety Report 10047607 (Version 1)
Quarter: 2014Q1

REPORT INFORMATION
  Report Type: Spontaneous
  Country: US (occurrence: None)
  Receive Date: 20140328
  Receipt Date: 20140328
  Transmission Date: 20141002
  Serious: Yes (Other)
  Sender: FDA-Public Use
  Company Number: None

PATIENT
  Age: 62 Year
  Sex: Female
  Weight: 43.55 kg

DRUGS (4)
  1. NAFCILLIN [Suspect]
     Indication: OSTEOMYELITIS
     Route: 042
     Dates: start: 20140219, end: 20140324
  2. AMLODIPINE [Concomitant]
  3. SIMVASTATIN [Concomitant]
  4. OTC ALLERGY PRODUCT [Concomitant]

REACTIONS (6)
  - Arthralgia [None]
  - Infusion related reaction [None]
  - Pruritus [None]
  - Chest pain [None]
  - Arthralgia [None]
  - Scratch [None]
